FAERS Safety Report 5212138-X (Version None)
Quarter: 2007Q1

REPORT INFORMATION
  Report Type: 
  Country: None (occurrence: None)
  Receive Date: 20070118
  Receipt Date: 20070110
  Transmission Date: 20070707
  Serious: Yes (Hospitalization)
  Sender: FDA-Public Use
  Company Number: US-SANOFI-SYNTHELABO-F03200700011

PATIENT
  Sex: Male
  Weight: 153.8 kg

DRUGS (3)
  1. OXALIPLATIN [Suspect]
     Indication: OESOPHAGEAL CARCINOMA
     Route: 042
     Dates: start: 20061226, end: 20061226
  2. XELODA [Suspect]
     Route: 048
     Dates: start: 20061226, end: 20061230
  3. DOCETAXEL [Suspect]
     Route: 042
     Dates: start: 20061226, end: 20061226

REACTIONS (2)
  - INTESTINAL OBSTRUCTION [None]
  - OESOPHAGITIS [None]
